FAERS Safety Report 5446425-7 (Version None)
Quarter: 2007Q3

REPORT INFORMATION
  Report Type: 
  Country: None (occurrence: None)
  Receive Date: 20070907
  Receipt Date: 20070724
  Transmission Date: 20080115
  Serious: Yes (Hospitalization)
  Sender: FDA-Public Use
  Company Number: US-ASTRAZENECA-2006UW28071

PATIENT
  Age: 66 Year
  Sex: Female
  Weight: 88.2 kg

DRUGS (19)
  1. ROSUVASTATIN [Suspect]
     Indication: DYSLIPIDAEMIA
     Route: 048
     Dates: start: 20060630, end: 20061001
  2. ROSUVASTATIN [Suspect]
     Route: 048
     Dates: start: 20061004
  3. ABT-335 [Suspect]
     Indication: DYSLIPIDAEMIA
     Route: 048
     Dates: start: 20060630, end: 20061001
  4. ABT-335 [Suspect]
     Route: 048
     Dates: start: 20061004
  5. ASPIRIN [Concomitant]
     Indication: CORONARY ARTERY DISEASE
     Route: 048
     Dates: start: 20040101
  6. PARACETAMOL [Concomitant]
     Indication: OSTEOARTHRITIS
     Dates: start: 19950101
  7. PARACETAMOL [Concomitant]
     Indication: ARTHRITIS
     Dates: start: 19950101
  8. PARACETAMOL [Concomitant]
     Dosage: 4 TABLETS
     Dates: start: 20060415
  9. PARACETAMOL [Concomitant]
     Dosage: 4 TABLETS
     Dates: start: 20060415
  10. TRIAMTERENE [Concomitant]
     Indication: OEDEMA
     Dosage: 37.5/25 MG
     Dates: start: 20060414
  11. BENICAR [Concomitant]
     Indication: HYPERTENSION
     Dates: start: 20060706
  12. TAGAMET [Concomitant]
     Indication: GASTROOESOPHAGEAL REFLUX DISEASE
     Dosage: 1 TABLET
     Dates: start: 19850101
  13. CALCIUM CARBONATE [Concomitant]
     Indication: GASTROOESOPHAGEAL REFLUX DISEASE
     Dates: start: 19850101
  14. CALCIUM CARBONATE [Concomitant]
     Indication: MINERAL SUPPLEMENTATION
     Dates: start: 19850101
  15. FOLIC ACID [Concomitant]
     Indication: MEDICAL DIET
     Dosage: 1 TABLET
     Dates: start: 20050101
  16. RAMIPRIL [Concomitant]
     Indication: HYPERTENSION
     Dates: start: 20050601, end: 20060705
  17. TRAMADOL HCL [Concomitant]
     Indication: BACK PAIN
     Dates: start: 20060201
  18. SALBUTAMOL [Concomitant]
     Indication: CHRONIC OBSTRUCTIVE PULMONARY DISEASE
     Dosage: 1-2 PUFFS
     Dates: start: 19890101
  19. NARINE REPETABS [Concomitant]
     Indication: ASTHMA
     Dates: start: 19950101

REACTIONS (1)
  - LUNG NEOPLASM [None]
